FAERS Safety Report 18770028 (Version 1)
Quarter: 2021Q1

REPORT INFORMATION
  Report Type: Report from Study
  Country: US (occurrence: US)
  Receive Date: 20210121
  Receipt Date: 20210121
  Transmission Date: 20210419
  Serious: Yes (Hospitalization)
  Sender: FDA-Public Use
  Company Number: US-EISAI MEDICAL RESEARCH-EC-2020-085417

PATIENT
  Age: 54 Year
  Sex: Female

DRUGS (2)
  1. KEYTRUDA [Suspect]
     Active Substance: PEMBROLIZUMAB
     Indication: UTERINE CANCER
     Dosage: UNKNOWN
     Route: 065
  2. LENVIMA [Suspect]
     Active Substance: LENVATINIB
     Indication: MALIGNANT NEOPLASM OF UTERINE ADNEXA
     Route: 048
     Dates: start: 20201214, end: 20210107

REACTIONS (1)
  - Diabetes mellitus [Unknown]
